FAERS Safety Report 9473522 (Version 1)
Quarter: 2013Q3

REPORT INFORMATION
  Report Type: Spontaneous
  Country: IT (occurrence: IT)
  Receive Date: 20130823
  Receipt Date: 20130823
  Transmission Date: 20140515
  Serious: Yes (Other)
  Sender: FDA-Public Use
  Company Number: IT-SANOFI-AVENTIS-2013SA083483

PATIENT
  Age: 70 Year
  Sex: Male

DRUGS (1)
  1. OXALIPLATIN [Suspect]
     Indication: PRODUCT USED FOR UNKNOWN INDICATION
     Dosage: 85 MG PER MQ OF BODY SURFACE AREA
     Route: 042
     Dates: start: 20130123, end: 20130123

REACTIONS (2)
  - Hypertensive crisis [Recovered/Resolved]
  - Hyperaemia [Recovered/Resolved]
